FAERS Safety Report 7654269-0 (Version None)
Quarter: 2011Q3

REPORT INFORMATION
  Report Type: 
  Country: None (occurrence: None)
  Receive Date: 20110803
  Receipt Date: 20110801
  Transmission Date: 20111222
  Serious: Yes (Death)
  Sender: FDA-Public Use
  Company Number: US-AMGEN-USASP2011033274

PATIENT
  Age: 57 Year
  Sex: Male

DRUGS (3)
  1. NPLATE [Suspect]
     Indication: IDIOPATHIC THROMBOCYTOPENIC PURPURA
     Dosage: 5 A?G/KG, UNK
     Dates: start: 20110427, end: 20110518
  2. IVIGLOB-EX [Concomitant]
  3. CORTICOSTEROIDS [Concomitant]

REACTIONS (4)
  - AIDS RELATED COMPLICATION [None]
  - SEPSIS [None]
  - MULTI-ORGAN FAILURE [None]
  - HAEMORRHAGE [None]
